FAERS Safety Report 9745578 (Version 4)
Quarter: 2014Q1

REPORT INFORMATION
  Report Type: Spontaneous
  Country: DE (occurrence: DE)
  Receive Date: 20131211
  Receipt Date: 20140122
  Transmission Date: 20141002
  Serious: Yes (Hospitalization, Other)
  Sender: FDA-Public Use
  Company Number: DE-UCBSA-105087

PATIENT
  Sex: Female
  Weight: 70 kg

DRUGS (4)
  1. VIMPAT [Suspect]
     Indication: EPILEPSY
     Dosage: DOSE: 150-0-150 MG
     Route: 048
     Dates: start: 201201
  2. LAMICTAL [Concomitant]
     Indication: EPILEPSY
     Dosage: 2 X 200 MG, 400 MG, FREQUENCY: 2 PER DAY
  3. LYRICA [Concomitant]
     Indication: EPILEPSY
     Dosage: 2 X 150 MG, 300 MG, FREQUENCY: 2 PER DAY
     Route: 048
     Dates: start: 20120101
  4. CIPRAMIL [Concomitant]
     Dosage: 20 MG
     Route: 048
     Dates: start: 201206

REACTIONS (22)
  - Convulsion [Unknown]
  - Suicide attempt [Unknown]
  - Arrhythmia [Unknown]
  - Memory impairment [Unknown]
  - Tongue movement disturbance [Unknown]
  - Swollen tongue [Unknown]
  - Dyspepsia [Unknown]
  - Functional gastrointestinal disorder [Unknown]
  - Local swelling [Unknown]
  - Swelling face [Unknown]
  - Cardiac disorder [Unknown]
  - Dizziness [Not Recovered/Not Resolved]
  - Neuralgia [Unknown]
  - Depression [Not Recovered/Not Resolved]
  - Constipation [Not Recovered/Not Resolved]
  - Fatigue [Not Recovered/Not Resolved]
  - Vestibular disorder [Not Recovered/Not Resolved]
  - Mood altered [Not Recovered/Not Resolved]
  - Negative thoughts [Not Recovered/Not Resolved]
  - Apathy [Not Recovered/Not Resolved]
  - Faeces hard [Not Recovered/Not Resolved]
  - Dry mouth [Not Recovered/Not Resolved]
